FAERS Safety Report 8371384-7 (Version None)
Quarter: 2012Q2

REPORT INFORMATION
  Report Type: 
  Country: None (occurrence: None)
  Receive Date: 20120518
  Receipt Date: 20120511
  Transmission Date: 20120825
  Serious: Yes (Other)
  Sender: FDA-Public Use
  Company Number: US-FRI-1000030477

PATIENT
  Age: 52 Year
  Sex: Female

DRUGS (4)
  1. SYNTHROID [Concomitant]
     Indication: HYPOTHYROIDISM
  2. VIIBRYD [Suspect]
     Indication: ANXIETY
  3. VIIBRYD [Suspect]
     Indication: DEPRESSION
     Dosage: 10 MG
     Route: 048
     Dates: start: 20120502, end: 20120509
  4. DIOVAN [Concomitant]
     Indication: HYPERTENSION

REACTIONS (10)
  - FEELING ABNORMAL [None]
  - CHEST DISCOMFORT [None]
  - HEADACHE [None]
  - PALPITATIONS [None]
  - FEELING JITTERY [None]
  - PARAESTHESIA [None]
  - AGITATION [None]
  - ANXIETY [None]
  - NAUSEA [None]
  - BLOOD PRESSURE INCREASED [None]
